FAERS Safety Report 8303618-9 (Version None)
Quarter: 2012Q2

REPORT INFORMATION
  Report Type: 
  Country: None (occurrence: None)
  Receive Date: 20120423
  Receipt Date: 20120418
  Transmission Date: 20120825
  Serious: No
  Sender: FDA-Public Use
  Company Number: US-B.I. PHARMACEUTICALS,INC./RIDGEFIELD-2012-BP-07390BP

PATIENT
  Age: 85 Year
  Sex: Female

DRUGS (8)
  1. FLAX SEED [Concomitant]
     Indication: BLOOD CHOLESTEROL INCREASED
     Route: 048
     Dates: start: 20020101
  2. EXTRA STRENGTH TYLENOL [Concomitant]
     Indication: ARTHRITIS
     Route: 048
     Dates: start: 20020101
  3. QVAR 40 [Suspect]
     Indication: ASTHMA
     Route: 055
     Dates: start: 20120409, end: 20120411
  4. FISH OIL [Concomitant]
     Indication: SUPPLEMENTATION THERAPY
     Route: 048
     Dates: start: 20020101
  5. COMBIVENT [Suspect]
     Indication: ASTHMA
     Dosage: 4 PUF
     Route: 055
     Dates: start: 20120409
  6. MULTAQ [Concomitant]
     Indication: ATRIAL FIBRILLATION
     Route: 048
     Dates: start: 20120328
  7. XANAX [Concomitant]
     Indication: ANXIETY
     Route: 048
     Dates: start: 19850101
  8. ZANTAC [Concomitant]
     Indication: GASTROOESOPHAGEAL REFLUX DISEASE
     Route: 048
     Dates: start: 20020101

REACTIONS (2)
  - ORAL CANDIDIASIS [None]
  - ABDOMINAL DISCOMFORT [None]
